FAERS Safety Report 8453864-9 (Version None)
Quarter: 2012Q2

REPORT INFORMATION
  Report Type: 
  Country: None (occurrence: None)
  Receive Date: 20120620
  Receipt Date: 20120611
  Transmission Date: 20120825
  Serious: Yes (Other)
  Sender: FDA-Public Use
  Company Number: JP-VERTEX PHARMACEUTICALS INC.-AE-2012-005987

PATIENT
  Age: 66 Year
  Sex: Male

DRUGS (12)
  1. PEG-INTRON [Concomitant]
     Indication: HEPATITIS C
     Route: 058
     Dates: start: 20120307, end: 20120307
  2. PEG-INTRON [Concomitant]
     Route: 058
     Dates: start: 20120314, end: 20120523
  3. LISINOPRIL [Concomitant]
     Route: 048
  4. GLUFAST [Concomitant]
     Route: 048
  5. URSO 250 [Concomitant]
     Route: 048
     Dates: end: 20120530
  6. PEG-INTRON [Concomitant]
     Route: 048
     Dates: start: 20120530
  7. REBETOL [Concomitant]
     Route: 048
     Dates: start: 20120531
  8. ACTOS [Concomitant]
     Route: 048
  9. TELAVIC (TELAPREVIR) [Suspect]
     Indication: HEPATITIS C
     Route: 048
     Dates: start: 20120307, end: 20120530
  10. REBETOL [Concomitant]
     Route: 048
     Dates: start: 20120322, end: 20120530
  11. KALIMATE [Concomitant]
     Route: 048
  12. REBETOL [Concomitant]
     Indication: HEPATITIS C
     Route: 048
     Dates: start: 20120307, end: 20120321

REACTIONS (1)
  - WHITE BLOOD CELL COUNT DECREASED [None]
